FAERS Safety Report 16542004 (Version 1)
Quarter: 2019Q3

REPORT INFORMATION
  Report Type: Spontaneous
  Country: US (occurrence: US)
  Receive Date: 20190708
  Receipt Date: 20190708
  Transmission Date: 20191004
  Serious: Yes (Other)
  Sender: FDA-Public Use
  Company Number: US-OTSUKA-2019_025159

PATIENT
  Age: 82 Year
  Sex: Female

DRUGS (4)
  1. DACOGEN [Suspect]
     Active Substance: DECITABINE
     Indication: ACUTE MYELOID LEUKAEMIA
     Dosage: UNK
     Route: 065
  2. VENETOCLAX. [Suspect]
     Active Substance: VENETOCLAX
     Indication: ACUTE MYELOID LEUKAEMIA
     Dosage: 200 MG, QD (1 IN 1D)
     Route: 048
     Dates: start: 201906
  3. VENETOCLAX. [Suspect]
     Active Substance: VENETOCLAX
     Dosage: 100 MG, QD (1 IN 1D)
     Route: 048
     Dates: start: 20190506, end: 201905
  4. DACOGEN [Suspect]
     Active Substance: DECITABINE
     Dosage: DOSE INCRESAED
     Route: 065

REACTIONS (3)
  - Haemoglobin decreased [Recovering/Resolving]
  - Condition aggravated [Recovering/Resolving]
  - Iron deficiency [Recovering/Resolving]

NARRATIVE: CASE EVENT DATE: 201905
